FAERS Safety Report 6791082-0 (Version None)
Quarter: 2010Q2

REPORT INFORMATION
  Report Type: 
  Country: None (occurrence: None)
  Receive Date: 20100624
  Receipt Date: 20100614
  Transmission Date: 20101027
  Serious: Yes (Hospitalization, Other)
  Sender: FDA-Public Use
  Company Number: US-ELI_LILLY_AND_COMPANY-US201005002434

PATIENT
  Sex: Female

DRUGS (11)
  1. FORTEO [Suspect]
     Indication: OSTEOPOROSIS
     Dosage: 20 UG, DAILY (1/D)
     Dates: start: 20100217
  2. LOTREL [Concomitant]
     Dosage: 5 MG, DAILY (1/D)
  3. LEVOXYL [Concomitant]
     Dosage: 0.112 MG, DAILY (1/D)
  4. LIPITOR [Concomitant]
     Dosage: 40 MG, DAILY (1/D)
  5. VITAMIN D [Concomitant]
     Dosage: 1000 IU, DAILY (1/D)
  6. CALCIUM CARBONATE [Concomitant]
     Dosage: 1000 IU, DAILY (1/D)
  7. ASPIRIN [Concomitant]
     Dosage: 81 MG, DAILY (1/D)
  8. MULTI-VITAMIN [Concomitant]
     Dosage: UNK, DAILY (1/D)
  9. TUMS [Concomitant]
  10. SPIRIVA [Concomitant]
  11. ALBUTEROL [Concomitant]

REACTIONS (2)
  - FALL [None]
  - FEMUR FRACTURE [None]
